FAERS Safety Report 18465633 (Version 3)
Quarter: 2021Q1

REPORT INFORMATION
  Report Type: Report from Study
  Country: US (occurrence: US)
  Receive Date: 20201105
  Receipt Date: 20210202
  Transmission Date: 20210419
  Serious: Yes (Hospitalization, Other)
  Sender: FDA-Public Use
  Company Number: US-GILEAD-2020-0502868

PATIENT
  Age: 16 Year
  Sex: Male

DRUGS (17)
  1. ADVAIR HFA [Concomitant]
     Active Substance: FLUTICASONE PROPIONATE\SALMETEROL XINAFOATE
  2. FISH OIL [Concomitant]
     Active Substance: FISH OIL
  3. SPIRONOLACTON [Concomitant]
     Active Substance: SPIRONOLACTONE
  4. AMBRISENTAN [Suspect]
     Active Substance: AMBRISENTAN
     Indication: PULMONARY ARTERIAL HYPERTENSION
     Dosage: 10 MG, QD
     Route: 065
     Dates: start: 20090707
  5. DAPSONE. [Concomitant]
     Active Substance: DAPSONE
  6. TACROLIMUS. [Concomitant]
     Active Substance: TACROLIMUS
  7. ADCIRCA [Concomitant]
     Active Substance: TADALAFIL
  8. MULTIVITAMIN [Concomitant]
     Active Substance: VITAMINS
  9. CYPROHEPTADIN [Concomitant]
     Active Substance: CYPROHEPTADINE HYDROCHLORIDE
  10. LORATADINE. [Concomitant]
     Active Substance: LORATADINE
  11. EPINASTINE. [Concomitant]
     Active Substance: EPINASTINE HYDROCHLORIDE
  12. ASPIRIN. [Concomitant]
     Active Substance: ASPIRIN
  13. DRONABINOL. [Concomitant]
     Active Substance: DRONABINOL
  14. LASIX [Concomitant]
     Active Substance: FUROSEMIDE
  15. LEXAPRO [Concomitant]
     Active Substance: ESCITALOPRAM OXALATE
  16. LOTEMAX [Concomitant]
     Active Substance: LOTEPREDNOL ETABONATE
  17. REMODULIN [Concomitant]
     Active Substance: TREPROSTINIL

REACTIONS (4)
  - Lung disorder [Unknown]
  - Off label use [Recovered/Resolved]
  - Heart and lung transplant [Unknown]
  - Cardiac disorder [Unknown]
